FAERS Safety Report 6256015-4 (Version None)
Quarter: 2009Q2

REPORT INFORMATION
  Report Type: 
  Country: None (occurrence: None)
  Receive Date: 20090630
  Receipt Date: 20090630
  Transmission Date: 20091009
  Serious: Yes (Life-Threatening)
  Sender: FDA-Public Use
  Company Number: None

PATIENT
  Sex: Female
  Weight: 126.1 kg

DRUGS (2)
  1. SYMBICORT [Suspect]
     Indication: ASTHMA
     Dosage: TWO PUFFS TWICE PER DAY PO
     Route: 048
     Dates: start: 20090618, end: 20090622
  2. SYMBICORT [Suspect]
     Indication: BRONCHITIS CHRONIC
     Dosage: TWO PUFFS TWICE PER DAY PO
     Route: 048
     Dates: start: 20090618, end: 20090622

REACTIONS (6)
  - CANDIDIASIS [None]
  - DYSPNOEA [None]
  - LIP SWELLING [None]
  - OEDEMA MOUTH [None]
  - PHARYNGEAL OEDEMA [None]
  - SWOLLEN TONGUE [None]
